FAERS Safety Report 8814332 (Version 1)
Quarter: 2012Q4

REPORT INFORMATION
  Report Type: Spontaneous
  Country: US (occurrence: None)
  Receive Date: 20120925
  Receipt Date: 20120925
  Transmission Date: 20130627
  Serious: Yes (Hospitalization)
  Sender: FDA-Public Use
  Company Number: UTC-023287

PATIENT
  Age: 77 Year
  Sex: Female
  Weight: 42.27 kg

DRUGS (10)
  1. REMODULIN [Suspect]
     Indication: PRIMARY PULMONARY HYPERTENSION
     Dosage: (0.104 ug/kg,1 in 1 min)
     Route: 058
     Dates: start: 20110407
  2. REVATIO (SILDENAFIL CITRATE) [Concomitant]
  3. LETAIRIS (AMBRISENTAN) [Concomitant]
  4. ZOCOR (SIMVASTATIN) [Concomitant]
  5. ASA (ACETYLSALICYLIC ACID) [Concomitant]
  6. CELEBREX (CELECOXIB) [Concomitant]
  7. DETROL (TOLTERODINE) [Concomitant]
  8. LEVOXYL (LEVOTHYROXINE SODIUM) [Concomitant]
  9. PLAVIX (CLOPIDOGREL) [Concomitant]
  10. PRILOSEC (OMEPRAZOLE) [Concomitant]

REACTIONS (3)
  - Infusion site swelling [None]
  - Infusion site pain [None]
  - Infusion site erythema [None]
